FAERS Safety Report 25715046 (Version 1)
Quarter: 2025Q3

REPORT INFORMATION
  Report Type: Spontaneous
  Country: US (occurrence: US)
  Receive Date: 20250822
  Receipt Date: 20250822
  Transmission Date: 20251020
  Serious: Yes (Hospitalization, Other)
  Sender: Unknown Manufacturer
  Company Number: US-862174955-ML2025-04231

PATIENT
  Age: 66 Year
  Sex: Female
  Weight: 81 kg

DRUGS (6)
  1. APIXABAN [Suspect]
     Active Substance: APIXABAN
     Indication: Pulmonary embolism
     Dosage: 5MG TWICE DAILY
  2. APIXABAN [Suspect]
     Active Substance: APIXABAN
  3. VALPROIC ACID [Suspect]
     Active Substance: VALPROIC ACID
     Indication: Bipolar disorder
  4. VALPROIC ACID [Suspect]
     Active Substance: VALPROIC ACID
  5. LITHIUM [Concomitant]
     Active Substance: LITHIUM
     Indication: Bipolar disorder
  6. ZIPRASIDONE [Concomitant]
     Active Substance: ZIPRASIDONE
     Indication: Mania
     Route: 030

REACTIONS (2)
  - Deep vein thrombosis [Unknown]
  - Drug interaction [Unknown]
